FAERS Safety Report 9217593 (Version 1)
Quarter: 2013Q2

REPORT INFORMATION
  Report Type: Report from Study
  Country: RO (occurrence: RO)
  Receive Date: 20130408
  Receipt Date: 20130408
  Transmission Date: 20140414
  Serious: Yes (Other)
  Sender: FDA-Public Use
  Company Number: RO-ROCHE-1210498

PATIENT
  Age: 26 Year
  Sex: Female
  Weight: 49 kg

DRUGS (1)
  1. PEG-INTERFERON ALFA 2A [Suspect]
     Indication: CHRONIC HEPATITIS B
     Route: 058
     Dates: start: 20121214

REACTIONS (1)
  - Hepatitis [Not Recovered/Not Resolved]
